FAERS Safety Report 9269947 (Version 1)
Quarter: 2013Q2

REPORT INFORMATION
  Report Type: Spontaneous
  Country: FR (occurrence: FR)
  Receive Date: 20130503
  Receipt Date: 20130503
  Transmission Date: 20140414
  Serious: Yes (Hospitalization, Other)
  Sender: FDA-Public Use
  Company Number: FR-UCBSA-084718

PATIENT
  Age: 67 Year
  Sex: Male

DRUGS (13)
  1. KEPPRA [Suspect]
     Route: 048
  2. DEPAMIDE [Suspect]
     Route: 048
     Dates: start: 20130114, end: 20130207
  3. TAHOR [Suspect]
     Route: 048
     Dates: end: 20130214
  4. PERINDOPRIL [Suspect]
     Dosage: DAILY DOSE 6 MG
     Route: 048
     Dates: start: 20121221, end: 20130214
  5. FOLIC ACID [Concomitant]
  6. AVLOCARDYL [Concomitant]
  7. CLOPIDOGREL [Concomitant]
     Dosage: UNKNOWN DOSE
  8. DAFALGAN [Concomitant]
  9. LOXEN LP [Concomitant]
     Dosage: ONCE DAILY IN THE MORNING
  10. MOVICOL [Concomitant]
     Dosage: UNKNOWN DOSE
  11. RISPERDAL [Concomitant]
     Dosage: IN EVENING
  12. B12 VITAMIN [Concomitant]
     Dosage: USUAL TREATMENT
  13. SERESTA [Concomitant]
     Dosage: 50 MG WHEN REQUIRED

REACTIONS (3)
  - Pancreatitis [Recovered/Resolved]
  - Pancytopenia [Unknown]
  - Vitamin B12 deficiency [Unknown]
